FAERS Safety Report 11346841 (Version 2)
Quarter: 2015Q3

REPORT INFORMATION
  Report Type: Spontaneous
  Country: US (occurrence: US)
  Receive Date: 20150803
  Receipt Date: 20150831
  Transmission Date: 20151125
  Serious: No
  Sender: FDA-Public Use
  Company Number: US-ELI_LILLY_AND_COMPANY-US201101006373

PATIENT
  Age: 52 Year
  Sex: Female

DRUGS (7)
  1. ZYPREXA [Suspect]
     Active Substance: OLANZAPINE
     Dosage: 5 MG, DAILY (1/D)
  2. COGENTIN [Concomitant]
     Active Substance: BENZTROPINE MESYLATE
  3. ZYPREXA [Suspect]
     Active Substance: OLANZAPINE
     Dosage: 2.5 MG, DAILY (1/D)
     Dates: start: 201012
  4. CYMBALTA [Suspect]
     Active Substance: DULOXETINE HYDROCHLORIDE
     Dosage: 20 MG, 2/D
  5. DEPAKOTE [Concomitant]
     Active Substance: DIVALPROEX SODIUM
  6. CYMBALTA [Suspect]
     Active Substance: DULOXETINE HYDROCHLORIDE
     Dosage: 10 MG, DAILY (1/D)
  7. ZYPREXA [Suspect]
     Active Substance: OLANZAPINE
     Dosage: 2.5 MG, DAILY (1/D)

REACTIONS (3)
  - Agitation [Unknown]
  - Drug ineffective [Unknown]
  - Wrong technique in product usage process [Unknown]
